FAERS Safety Report 5638360-6 (Version None)
Quarter: 2008Q1

REPORT INFORMATION
  Report Type: 
  Country: None (occurrence: None)
  Receive Date: 20080226
  Receipt Date: 20080212
  Transmission Date: 20080703
  Serious: Yes (Other)
  Sender: FDA-Public Use
  Company Number: US-AVENTIS-200810335US

PATIENT
  Sex: Female
  Weight: 115 kg

DRUGS (39)
  1. LASIX [Suspect]
     Route: 048
  2. DIOVAN [Concomitant]
     Indication: CHEST PAIN
     Dosage: DOSE: UNK
  3. TRIAMTERENE AND HYDROCHLOROTHIAZIDE [Concomitant]
     Indication: BLOOD PRESSURE
     Dosage: DOSE: 37.5-25 CAP
  4. TRICOR                             /00090101/ [Concomitant]
  5. SIMVASTATIN [Concomitant]
  6. CYMBALTA [Concomitant]
  7. CYMBALTA [Concomitant]
  8. NEXIUM [Concomitant]
  9. PRILOSEC [Concomitant]
  10. PEPCID AC [Concomitant]
     Dosage: DOSE: UNK
  11. VIT D [Concomitant]
     Indication: VITAMIN D DEFICIENCY
  12. NASONEX [Concomitant]
  13. PROAIR HFA [Concomitant]
     Dosage: DOSE: UNK
  14. FLOVENT [Concomitant]
     Dosage: DOSE: UNK
  15. BACTROBAN [Concomitant]
     Dosage: DOSE: UNK
  16. CEPHALEXIN [Concomitant]
  17. PREDNIISONE [Concomitant]
     Dosage: DOSE: UNK
  18. TETRACYCLINE [Concomitant]
     Dosage: DOSE: UNK
  19. ANTIFUNGALS [Concomitant]
     Dosage: DOSE: UNK
  20. ALEVE [Concomitant]
  21. ASPIRIN [Concomitant]
     Dosage: DOSE: 81-325
  22. TYLENOL (CAPLET) [Concomitant]
  23. HERBAL PREPARATION [Concomitant]
     Dosage: DOSE: UNK
  24. DRUGS FOR FUNCTIONAL GASTROINTEST. DISORDERS [Concomitant]
     Dosage: DOSE: UNK
  25. COUGH AND COLD PREPARATIONS [Concomitant]
     Dosage: DOSE: UNK
  26. LLYSINE [Concomitant]
     Dosage: DOSE: UNK
  27. ACIDOPHILUS [Concomitant]
     Dosage: DOSE: UNK
  28. VITACE                             /01451501/ [Concomitant]
     Dosage: DOSE: UNK
  29. CALTRATE 600 + D [Concomitant]
     Dosage: DOSE: UNK
  30. CALCIUM [Concomitant]
     Dosage: DOSE: UNK
  31. MINERAL SUPPLEMENTS [Concomitant]
     Dosage: DOSE: UNK
  32. VITAMIN B COMPLEX CAP [Concomitant]
     Dosage: DOSE: UNK
  33. PEPTO BISMOL [Concomitant]
     Dosage: DOSE: UNK
  34. TUSSIN CF [Concomitant]
     Dosage: DOSE: UNK
  35. ROBITUSSIN                         /00288801/ [Concomitant]
     Dosage: DOSE: UNK
  36. BENADRYL [Concomitant]
     Dosage: DOSE: UNK
  37. CLARITIN [Concomitant]
     Dosage: DOSE: UNK
  38. PSEUDOEPHEDRINE HCL [Concomitant]
     Dosage: DOSE: UNK
  39. AZO CRANBERRY [Concomitant]
     Dosage: DOSE: UNK

REACTIONS (8)
  - ABDOMINAL PAIN UPPER [None]
  - ARRHYTHMIA [None]
  - DIZZINESS [None]
  - DYSPEPSIA [None]
  - HEADACHE [None]
  - HYPOKALAEMIA [None]
  - MUSCLE SPASMS [None]
  - PAIN IN EXTREMITY [None]
